FAERS Safety Report 16850829 (Version 1)
Quarter: 2019Q3

REPORT INFORMATION
  Report Type: Spontaneous
  Country: US (occurrence: US)
  Receive Date: 20190925
  Receipt Date: 20190925
  Transmission Date: 20191005
  Serious: No
  Sender: FDA-Public Use
  Company Number: US-THERAPEUTICSMD-2019TMD01378

PATIENT
  Age: 68 Year
  Sex: Female
  Weight: 47.76 kg

DRUGS (7)
  1. CLOBETASOL [Concomitant]
     Active Substance: CLOBETASOL
     Dosage: UNK, 2X/DAY
  2. UNSPECIFIED PROGESTIN [Concomitant]
     Dosage: 200 MG, 1X/DAY AT BEDTIME
  3. IMVEXXY [Suspect]
     Active Substance: ESTRADIOL
     Indication: VULVOVAGINAL DRYNESS
     Dosage: UNK RIGHT BEFORE BED
     Route: 067
     Dates: start: 20190424, end: 2019
  4. IMVEXXY [Suspect]
     Active Substance: ESTRADIOL
     Indication: LICHEN SCLEROSUS
     Dosage: 10 ?G 2X/WEEK RIGHT BEFORE BED
     Route: 067
     Dates: start: 2019, end: 20190607
  5. UNSPECIFIED ALLERGY INJECTIONS [Concomitant]
     Dosage: UNK, 1X/WEEK
  6. ATORVASTATIN [Concomitant]
     Active Substance: ATORVASTATIN
     Dosage: 10 MG, 1X/DAY AT BEDTIME
  7. CORTISONE [Concomitant]
     Active Substance: CORTISONE
     Dosage: UNK, 1X/DAY AT BEDTIME IN THE REGION
     Route: 061

REACTIONS (6)
  - Overweight [Not Recovered/Not Resolved]
  - Memory impairment [Unknown]
  - Feeling abnormal [Unknown]
  - Vaginal discharge [Recovered/Resolved]
  - Off label use [Recovered/Resolved]
  - Tension headache [Recovered/Resolved]

NARRATIVE: CASE EVENT DATE: 2019
